FAERS Safety Report 4582623-2 (Version None)
Quarter: 2005Q1

REPORT INFORMATION
  Report Type: 
  Country: None (occurrence: None)
  Receive Date: 20050125
  Receipt Date: 20041008
  Transmission Date: 20050727
  Serious: No
  Sender: FDA-Public Use
  Company Number: USA040979341

PATIENT
  Age: 74 Year
  Sex: Female
  Weight: 44 kg

DRUGS (4)
  1. FORTEO [Suspect]
     Dosage: 20 UG DAY
     Dates: start: 20040601
  2. EVISTA [Suspect]
     Dosage: 60 MG DAY
     Dates: start: 20030601, end: 20040601
  3. CALCIUM GLUCONATE [Concomitant]
  4. VITAMIN D [Concomitant]

REACTIONS (4)
  - ASTHENIA [None]
  - EXERCISE CAPACITY DECREASED [None]
  - MUSCLE SPASMS [None]
  - PAIN [None]
